FAERS Safety Report 16469314 (Version 2)
Quarter: 2019Q3

REPORT INFORMATION
  Report Type: Report from Study
  Country: DE (occurrence: DE)
  Receive Date: 20190624
  Receipt Date: 20190701
  Transmission Date: 20191004
  Serious: Yes (Death, Life-Threatening, Hospitalization, Other)
  Sender: FDA-Public Use
  Company Number: PHHY2019DE082630

PATIENT
  Sex: Female
  Weight: 83 kg

DRUGS (2)
  1. KISQALI [Suspect]
     Active Substance: RIBOCICLIB
     Indication: BREAST CANCER METASTATIC
     Dosage: 600 MG, DAILY
     Route: 048
     Dates: start: 20190226, end: 20190403
  2. EXEMESTANE. [Suspect]
     Active Substance: EXEMESTANE
     Indication: BREAST CANCER METASTATIC
     Dosage: 25 MG, DAILY
     Route: 048
     Dates: start: 20190226, end: 20190403

REACTIONS (14)
  - Nausea [Fatal]
  - Weight increased [Unknown]
  - Acute myocardial infarction [Fatal]
  - Chest pain [Fatal]
  - Lung infiltration [Fatal]
  - Cardiogenic shock [Fatal]
  - Bundle branch block left [Fatal]
  - Ventricular hypokinesia [Fatal]
  - Fatigue [Fatal]
  - Dyspnoea [Fatal]
  - Tachycardia [Fatal]
  - General physical health deterioration [Fatal]
  - Vomiting [Fatal]
  - Hypotension [Fatal]

NARRATIVE: CASE EVENT DATE: 20190226
